FAERS Safety Report 9202147 (Version 1)
Quarter: 2013Q2

REPORT INFORMATION
  Report Type: Spontaneous
  Country: NL (occurrence: NL)
  Receive Date: 20130401
  Receipt Date: 20130401
  Transmission Date: 20140414
  Serious: Yes (Other)
  Sender: FDA-Public Use
  Company Number: NL-MERCK-1303NLD014251

PATIENT
  Age: 63 Year
  Sex: Male
  Weight: 85 kg

DRUGS (13)
  1. SINEMET [Suspect]
     Indication: PARKINSONISM
     Dosage: 1 DF, QID, 1 PIECE (S) ADDITIONAL INFO: WITH REDUCTION SCHEDULES
     Dates: start: 20120621, end: 20120816
  2. INSULIN GLARGINE [Concomitant]
     Dosage: CONCENTRATION: 100E/ML, 36 IU, QD; 1 DD 36 E
  3. METOPROLOL [Concomitant]
     Dosage: 100 MG, BID
  4. NOVORAPID FLEXPEN [Concomitant]
     Dosage: CONCENTRATION:100E/ML WWSP 3ML, 1 DF, TID, 24-22-12 E
  5. TRIAMCINOLONE ACETONIDE [Concomitant]
     Dosage: CONCENTRATION: 1MG/G, 1 DF, UNK
  6. ATORVASTATIN [Concomitant]
     Dosage: CONCENTRATION:10 MG(ALS CA-ZOUT
  7. ZOLADEX [Concomitant]
     Dosage: 10.8MG IN WWSP, 1 TIMES PER 3 MONTHS
  8. MOVICOLON [Concomitant]
     Dosage: TIMES PER AS NECESSARY
  9. COMBODART [Concomitant]
     Dosage: 1 TIMES PER 1 DAYS, 1 DF, UNK
  10. OXAZEPAM [Concomitant]
     Dosage: TIMES PER AS NECESSARY
  11. CETOMACROGOL CREAM FORMULA A [Concomitant]
     Dosage: 1 DF, BID
  12. KOELZALF FNA [Concomitant]
     Dosage: 1 DF, QD
  13. PANTOPRAZOLE [Concomitant]
     Dosage: 40 MG, QD

REACTIONS (5)
  - Bone marrow failure [Recovered/Resolved]
  - Haemoglobin decreased [Recovered/Resolved]
  - Thrombocytopenia [Recovered/Resolved]
  - Leukopenia [Recovered/Resolved]
  - Anaemia [Recovered/Resolved]
